FAERS Safety Report 16297464 (Version 1)
Quarter: 2019Q2

REPORT INFORMATION
  Report Type: Spontaneous
  Country: US (occurrence: US)
  Receive Date: 20190510
  Receipt Date: 20190510
  Transmission Date: 20190711
  Serious: No
  Sender: FDA-Public Use
  Company Number: US-PFIZER INC-2019196918

PATIENT
  Age: 85 Year
  Sex: Female
  Weight: 49.89 kg

DRUGS (1)
  1. XANAX [Suspect]
     Active Substance: ALPRAZOLAM
     Indication: ABDOMINAL DISCOMFORT
     Dosage: UNK, 2X/DAY

REACTIONS (3)
  - Body height decreased [Unknown]
  - Product use in unapproved indication [Unknown]
  - Off label use [Unknown]
